FAERS Safety Report 23803961 (Version 1)
Quarter: 2024Q2

REPORT INFORMATION
  Report Type: Spontaneous
  Country: GR (occurrence: GR)
  Receive Date: 20240501
  Receipt Date: 20240501
  Transmission Date: 20240715
  Serious: Yes (Life-Threatening)
  Sender: FDA-Public Use
  Company Number: GR-PFIZER INC-PV202400055593

PATIENT
  Age: 23 Year
  Sex: Female

DRUGS (1)
  1. METHOTREXATE SODIUM [Suspect]
     Active Substance: METHOTREXATE SODIUM
     Indication: Abortion induced
     Dosage: INTRASAC INFUSION

REACTIONS (9)
  - Toxicity to various agents [Unknown]
  - Mucosal inflammation [Recovered/Resolved]
  - Oropharyngeal pain [Recovered/Resolved]
  - Rash maculo-papular [Unknown]
  - Myelosuppression [Recovered/Resolved]
  - Pyrexia [Unknown]
  - Febrile neutropenia [Unknown]
  - Hypotension [Unknown]
  - Product use in unapproved indication [Unknown]
